FAERS Safety Report 5973554-1 (Version None)
Quarter: 2008Q4

REPORT INFORMATION
  Report Type: 
  Country: None (occurrence: None)
  Receive Date: 20081201
  Receipt Date: 20081125
  Transmission Date: 20090506
  Serious: Yes (Hospitalization)
  Sender: FDA-Public Use
  Company Number: JP-ASTRAZENECA-2008AP08763

PATIENT
  Age: 22972 Day
  Sex: Female

DRUGS (3)
  1. CRESTOR [Suspect]
     Indication: HYPERLIPIDAEMIA
     Route: 048
     Dates: start: 20080626, end: 20081020
  2. MELBIN [Concomitant]
     Indication: DIABETES MELLITUS
     Route: 048
     Dates: start: 20030404, end: 20081015
  3. MELBIN [Concomitant]
     Dosage: DOSE REDUCED
     Route: 048
     Dates: start: 20081016, end: 20081020

REACTIONS (1)
  - HEPATIC FUNCTION ABNORMAL [None]
